FAERS Safety Report 11204437 (Version 2)
Quarter: 2015Q2

REPORT INFORMATION
  Report Type: Spontaneous
  Country: US (occurrence: US)
  Receive Date: 20150621
  Receipt Date: 20150621
  Transmission Date: 20150821
  Serious: Yes (Hospitalization, Congenital Anomaly, Other)
  Sender: FDA-Public Use
  Company Number: US-APOTEX-2015AP008005

PATIENT
  Age: 0 Day
  Sex: Female
  Weight: 1.1 kg

DRUGS (4)
  1. CELESTONE [Concomitant]
     Active Substance: BETAMETHASONE
     Indication: PRODUCT USED FOR UNKNOWN INDICATION
     Dosage: UNK
     Route: 064
  2. PAROXETINE HYDROCHLORIDE. [Suspect]
     Active Substance: PAROXETINE HYDROCHLORIDE
     Indication: DEPRESSION
     Dosage: 20 MG, UNK
     Route: 064
  3. PAXIL [Suspect]
     Active Substance: PAROXETINE HYDROCHLORIDE
     Indication: DEPRESSION
     Route: 064
  4. AMPICILLIN [Concomitant]
     Active Substance: AMPICILLIN
     Indication: PRODUCT USED FOR UNKNOWN INDICATION
     Route: 064

REACTIONS (18)
  - Cardiac failure congestive [Unknown]
  - Cardiac murmur [Unknown]
  - Ventricular septal defect [Unknown]
  - Premature baby [Unknown]
  - Apnoea neonatal [Unknown]
  - Conjunctivitis [Unknown]
  - Anaemia neonatal [Unknown]
  - Pulmonary artery stenosis congenital [Unknown]
  - Atrial septal defect [Unknown]
  - Foetal exposure during pregnancy [Unknown]
  - Jaundice neonatal [Unknown]
  - Aspiration [Unknown]
  - Haematochezia [Unknown]
  - Neonatal respiratory distress syndrome [Unknown]
  - Gastrooesophageal reflux disease [Unknown]
  - Sepsis [Unknown]
  - Hypoacusis [Unknown]
  - Feeding disorder neonatal [Unknown]

NARRATIVE: CASE EVENT DATE: 20031003
